FAERS Safety Report 13767004 (Version 2)
Quarter: 2017Q3

REPORT INFORMATION
  Report Type: Report from Study
  Country: US (occurrence: US)
  Receive Date: 20170719
  Receipt Date: 20170724
  Transmission Date: 20171127
  Serious: Yes (Hospitalization, Other)
  Sender: FDA-Public Use
  Company Number: US-AMGEN-USASL2017105499

PATIENT
  Age: 58 Year
  Sex: Female

DRUGS (5)
  1. PREDNISONE. [Concomitant]
     Active Substance: PREDNISONE
     Dosage: 4 MG, UNK
  2. METHOTREXATE. [Concomitant]
     Active Substance: METHOTREXATE
     Dosage: 2.5 MG, QWK
  3. PREDNISONE. [Concomitant]
     Active Substance: PREDNISONE
     Dosage: 7 MG, UNK
  4. ENBREL [Suspect]
     Active Substance: ETANERCEPT
     Indication: RHEUMATOID ARTHRITIS
     Dosage: 50 MG, QWK
     Route: 065
     Dates: end: 201703
  5. ENBREL [Suspect]
     Active Substance: ETANERCEPT
     Indication: PSORIATIC ARTHROPATHY

REACTIONS (9)
  - Blood potassium abnormal [Unknown]
  - Intentional product misuse [Unknown]
  - Pain [Unknown]
  - Pneumonia [Unknown]
  - Skin disorder [Not Recovered/Not Resolved]
  - Product storage error [Unknown]
  - Influenza [Unknown]
  - Blood sodium abnormal [Unknown]
  - Peripheral swelling [Unknown]

NARRATIVE: CASE EVENT DATE: 2016
